FAERS Safety Report 5133249-3 (Version None)
Quarter: 2006Q4

REPORT INFORMATION
  Report Type: 
  Country: None (occurrence: None)
  Receive Date: 20061018
  Receipt Date: 20061005
  Transmission Date: 20070319
  Serious: Yes (Other)
  Sender: FDA-Public Use
  Company Number: SPVI-2006-01175

PATIENT
  Age: 31 Year
  Sex: Female

DRUGS (6)
  1. PENTASA [Suspect]
     Indication: COLITIS ULCERATIVE
     Dosage: 1000 MG DAILY, RECTAL
     Route: 054
     Dates: start: 20050714, end: 20060215
  2. BETAMETHASONE [Concomitant]
  3. BETAMETASONE (BETAMETHASONE SODIUM PHOSPHATE) [Concomitant]
  4. RANITIDINE HYDROCHLORIDE [Concomitant]
  5. PREDNISOLONE [Concomitant]
  6. SULFASALAZINE [Concomitant]

REACTIONS (4)
  - ABORTION [None]
  - ABORTION SPONTANEOUS [None]
  - DRUG EXPOSURE DURING PREGNANCY [None]
  - PREGNANCY [None]
